FAERS Safety Report 5647356-X (Version None)
Quarter: 2008Q1

REPORT INFORMATION
  Report Type: 
  Country: None (occurrence: None)
  Receive Date: 20080229
  Receipt Date: 20080229
  Transmission Date: 20080703
  Serious: No
  Sender: FDA-Public Use
  Company Number: None

PATIENT
  Sex: Female
  Weight: 74.3899 kg

DRUGS (3)
  1. MORPHINE SULFATE [Suspect]
     Indication: MIGRAINE
     Dosage: 100MG BID PO
     Route: 048
     Dates: start: 20071027
  2. MORPHINE SULFATE [Suspect]
     Indication: NEURALGIA
     Dosage: 100MG BID PO
     Route: 048
     Dates: start: 20071027
  3. MORPHINE SULFATE [Suspect]
     Indication: MYALGIA
     Dosage: 100MG BID PO
     Route: 048

REACTIONS (7)
  - AGITATION [None]
  - DRUG INTOLERANCE [None]
  - INSOMNIA [None]
  - NAUSEA [None]
  - RASH [None]
  - RESTLESSNESS [None]
  - THERAPEUTIC RESPONSE UNEXPECTED WITH DRUG SUBSTITUTION [None]
